FAERS Safety Report 25778178 (Version 1)
Quarter: 2025Q3

REPORT INFORMATION
  Report Type: Spontaneous
  Country: EU (occurrence: EU)
  Receive Date: 20250909
  Receipt Date: 20250909
  Transmission Date: 20251020
  Serious: Yes (Other)
  Sender: AUROBINDO
  Company Number: EU-ORPHANEU-2025005867

PATIENT
  Age: 2 Day
  Sex: Male
  Weight: 2.31 kg

DRUGS (3)
  1. IBUPROFEN [Suspect]
     Active Substance: IBUPROFEN
     Indication: Product used for unknown indication
     Route: 065
  2. FUROSEMIDE [Concomitant]
     Active Substance: FUROSEMIDE
     Indication: Product used for unknown indication
     Route: 042
  3. BUMETANIDE [Concomitant]
     Active Substance: BUMETANIDE
     Indication: Polyuria
     Route: 042

REACTIONS (5)
  - Haemolytic anaemia [Unknown]
  - Neonatal respiratory failure [Recovered/Resolved]
  - Pancytopenia [Recovered/Resolved]
  - Pulmonary oedema neonatal [Recovered/Resolved]
  - Renal impairment neonatal [Recovered/Resolved]
